FAERS Safety Report 17845348 (Version 1)
Quarter: 2020Q2

REPORT INFORMATION
  Report Type: Spontaneous
  Country: US (occurrence: US)
  Receive Date: 20200529
  Receipt Date: 20200529
  Transmission Date: 20200714
  Serious: Yes (Death)
  Sender: FDA-Public Use
  Company Number: None

PATIENT
  Sex: Female

DRUGS (28)
  1. OXYCODONE [Concomitant]
     Active Substance: OXYCODONE
  2. BUTRANS [Concomitant]
     Active Substance: BUPRENORPHINE
  3. LORAZEPAM. [Concomitant]
     Active Substance: LORAZEPAM
  4. ONDANSETRON [Concomitant]
     Active Substance: ONDANSETRON
  5. PREDNISONE. [Concomitant]
     Active Substance: PREDNISONE
  6. SMZ/TMP [Concomitant]
     Active Substance: SULFAMETHOXAZOLE\TRIMETHOPRIM
  7. AMLODIPINE [Concomitant]
     Active Substance: AMLODIPINE BESYLATE
  8. DOK [Concomitant]
     Active Substance: DOCUSATE SODIUM
  9. BANOPHEN [Concomitant]
     Active Substance: DIPHENHYDRAMINE HYDROCHLORIDE
  10. FLEET ENEMA [Concomitant]
     Active Substance: SODIUM PHOSPHATE, DIBASIC\SODIUM PHOSPHATE, MONOBASIC
  11. PROCHLORPER [Concomitant]
  12. CAPECITABINE 500MG [Suspect]
     Active Substance: CAPECITABINE
     Indication: OVARIAN CANCER
     Dosage: ?          OTHER ROUTE:ORAL (TAKEN ON DAYS1-14 OF 21)?
     Dates: start: 201907, end: 202001
  13. CAPECITABINE 150MG [Suspect]
     Active Substance: CAPECITABINE
     Indication: OVARIAN CANCER
     Dosage: ?          OTHER ROUTE:ORAL (TAKEN ON DAYS 1-14 OF 21)?
     Dates: start: 201907, end: 202001
  14. PROCHLORPER [Concomitant]
  15. BUPRENORPHIN [Concomitant]
     Active Substance: BUPRENORPHINE
  16. CEPHALEXIN. [Concomitant]
     Active Substance: CEPHALEXIN
  17. OMEPRAZOLE. [Concomitant]
     Active Substance: OMEPRAZOLE
  18. AMOXICILLIN. [Concomitant]
     Active Substance: AMOXICILLIN
  19. DOXYCYC HYC [Concomitant]
  20. OXYCODONE AND ACETAMINOPHEN [Concomitant]
     Active Substance: ACETAMINOPHEN\OXYCODONE HYDROCHLORIDE
  21. PH MILK MAGN SUSU CHERRY [Concomitant]
  22. TRAZODONE [Concomitant]
     Active Substance: TRAZODONE HYDROCHLORIDE
  23. LBUPROFEN [Concomitant]
  24. BISACODYL. [Concomitant]
     Active Substance: BISACODYL
  25. MEKINIST [Concomitant]
     Active Substance: TRAMETINIB DIMETHYL SULFOXIDE
  26. DEXAMETHASONE. [Concomitant]
     Active Substance: DEXAMETHASONE
  27. NYSTOP [Concomitant]
     Active Substance: NYSTATIN
  28. GABAPENTIN. [Concomitant]
     Active Substance: GABAPENTIN

REACTIONS (1)
  - Death [None]
